FAERS Safety Report 11451572 (Version 8)
Quarter: 2016Q2

REPORT INFORMATION
  Report Type: Spontaneous
  Country: US (occurrence: US)
  Receive Date: 20150903
  Receipt Date: 20160414
  Transmission Date: 20160815
  Serious: Yes (Other)
  Sender: FDA-Public Use
  Company Number: ADR-2015-01314

PATIENT
  Age: 65 Year
  Sex: Female

DRUGS (8)
  1. BUPIVACAINE. [Suspect]
     Active Substance: BUPIVACAINE
     Dosage: 3.564MG/DAY
     Route: 037
  2. COMPOUNDED BACLOFEN [Suspect]
     Active Substance: BACLOFEN
     Dosage: 264MCG/DAY
     Route: 037
  3. BUPIVACAINE. [Suspect]
     Active Substance: BUPIVACAINE
     Dosage: 12MG/DAY
     Route: 037
  4. BACLOFEN. [Suspect]
     Active Substance: BACLOFEN
     Dosage: 85.15MCG/DAY
     Route: 037
  5. SUFENTA [Suspect]
     Active Substance: SUFENTANIL CITRATE
     Dosage: 35.64MCG/DAY
     Route: 037
  6. SUFENTA [Suspect]
     Active Substance: SUFENTANIL CITRATE
     Dosage: 62MCG/DAY
     Route: 037
  7. MORPHINE [Suspect]
     Active Substance: MORPHINE
     Dosage: 1.0033MG/DAY
     Route: 037
  8. DILAUDID [Suspect]
     Active Substance: HYDROMORPHONE HYDROCHLORIDE
     Route: 048

REACTIONS (22)
  - Fall [Unknown]
  - Confusional state [Unknown]
  - Constipation [Unknown]
  - Arthralgia [Unknown]
  - Hypoaesthesia [Unknown]
  - Therapeutic response decreased [Unknown]
  - Communication disorder [Unknown]
  - Muscle tightness [Unknown]
  - Adverse drug reaction [Unknown]
  - Pain in extremity [Unknown]
  - Weight decreased [Unknown]
  - Medical device site nerve damage [Unknown]
  - Mental impairment [Unknown]
  - Infusion site fibrosis [Unknown]
  - Pain [Unknown]
  - Gait disturbance [Unknown]
  - Extrasystoles [Unknown]
  - Incoherent [Unknown]
  - Abasia [Unknown]
  - Neuralgia [Unknown]
  - Unevaluable event [Unknown]
  - Infusion site mass [Unknown]
